FAERS Safety Report 9961687 (Version 1)
Quarter: 2014Q1

REPORT INFORMATION
  Report Type: Report from Study
  Country: US (occurrence: US)
  Receive Date: 20140305
  Receipt Date: 20140305
  Transmission Date: 20141002
  Serious: No
  Sender: FDA-Public Use
  Company Number: US-ABBVIE-13P-163-1111164-00

PATIENT
  Age: 73 Year
  Sex: Female

DRUGS (17)
  1. HUMIRA [Suspect]
     Indication: RHEUMATOID ARTHRITIS
     Route: 058
     Dates: start: 20130316
  2. ADVAIR [Concomitant]
     Indication: ASTHMA
     Dosage: 250/50 TWICE DAILY
  3. ALBUTEROL [Concomitant]
     Indication: ASTHMA
  4. CITALOPRAM [Concomitant]
     Indication: DEPRESSION
     Dosage: 20 MG ORALLY DAILY
     Route: 048
  5. LOMOTIL [Concomitant]
     Indication: DIARRHOEA
     Dosage: 2.5 MCG ONE FOUR TIMES DAILY
  6. HYDROCODONE W/ACETAMINOPHEN [Concomitant]
     Indication: PAIN
  7. LANTUS [Concomitant]
     Indication: DIABETES MELLITUS
     Dosage: 35 UNITS DAILY
  8. LEVOTHYROXINE [Concomitant]
     Indication: HYPOTHYROIDISM
     Dosage: 50 MCG DAILY
  9. LOSARTAN [Concomitant]
     Indication: HYPERTENSION
     Dosage: 100 MG ORALLY DAILY
     Route: 048
  10. METHOTREXATE [Concomitant]
     Indication: RHEUMATOID ARTHRITIS
     Route: 048
  11. METFORMIN [Concomitant]
     Indication: DIABETES MELLITUS
     Dosage: 1000 MG TWICE DAILY
     Route: 048
  12. OMEPRAZOLE [Concomitant]
     Indication: GASTROOESOPHAGEAL REFLUX DISEASE
     Dosage: 20 MG DAILY
     Route: 048
  13. OXYBUTIN [Concomitant]
     Indication: BLADDER DISORDER
     Dosage: 5 MG ONE DAILY
     Route: 048
  14. PLAQUENIL [Concomitant]
     Indication: RHEUMATOID ARTHRITIS
     Dosage: 200 MG TWICE DAILY
     Route: 048
  15. PROAIR [Concomitant]
     Indication: ASTHMA
     Dosage: 1-2 PUFFS 4-6 HOURS AS NEEDED
  16. SIMVASTATIN [Concomitant]
     Indication: BLOOD CHOLESTEROL INCREASED
     Dosage: 40 MG ONE DAILY
     Route: 048
  17. VOLTAREN [Concomitant]
     Indication: PAIN

REACTIONS (1)
  - Injection site pain [Recovered/Resolved]
